FAERS Safety Report 20234142 (Version 1)
Quarter: 2021Q4

REPORT INFORMATION
  Report Type: Spontaneous
  Country: US (occurrence: US)
  Receive Date: 20211227
  Receipt Date: 20211227
  Transmission Date: 20220303
  Serious: No
  Sender: FDA-Public Use
  Company Number: US-FOUNDATIONCONSUMERHC-2021-US-015380

PATIENT
  Age: 43 Year
  Sex: Female
  Weight: 54.43 kg

DRUGS (5)
  1. PLAN B ONE-STEP [Suspect]
     Active Substance: LEVONORGESTREL
     Indication: Post coital contraception
     Dosage: 1.5 MG TAB X2 USES
     Route: 048
     Dates: start: 20210703, end: 20210706
  2. VCF CONTRACEPTIVE [Suspect]
     Active Substance: NONOXYNOL-9
     Dates: start: 20210703, end: 20210706
  3. VCF CONTRACEPTIVE [Suspect]
     Active Substance: NONOXYNOL-9
     Dates: start: 20210703, end: 20210706
  4. MAXALT [Concomitant]
     Active Substance: RIZATRIPTAN BENZOATE
  5. ZOMIG [Concomitant]
     Active Substance: ZOLMITRIPTAN

REACTIONS (2)
  - Vaginal haemorrhage [Recovered/Resolved]
  - Sinusitis [Not Recovered/Not Resolved]

NARRATIVE: CASE EVENT DATE: 20210708
